FAERS Safety Report 6666495-8 (Version None)
Quarter: 2010Q2

REPORT INFORMATION
  Report Type: 
  Country: None (occurrence: None)
  Receive Date: 20100402
  Receipt Date: 20100325
  Transmission Date: 20101027
  Serious: Yes (Other)
  Sender: FDA-Public Use
  Company Number: US-AMGEN-QUU395995

PATIENT
  Sex: Female
  Weight: 69 kg

DRUGS (22)
  1. EPOGEN [Suspect]
     Indication: DIALYSIS
     Route: 042
     Dates: start: 20100202
  2. ARANESP [Suspect]
     Indication: DIALYSIS
     Route: 042
     Dates: start: 20090404, end: 20100113
  3. SENSIPAR [Concomitant]
     Route: 048
  4. COREG [Concomitant]
     Route: 048
  5. NORVASC [Concomitant]
     Route: 048
  6. ZEMPLAR [Concomitant]
     Route: 042
  7. SEVELAMER [Concomitant]
     Route: 048
  8. VENOFER [Concomitant]
     Route: 042
  9. INFLUENZA VACCINE [Concomitant]
     Route: 030
     Dates: start: 20091009
  10. HEPATITIS B VACCINE [Concomitant]
     Dates: start: 20090407, end: 20091007
  11. DIOVAN [Concomitant]
     Route: 048
  12. HEPARIN [Concomitant]
     Route: 042
  13. ASPIRIN [Concomitant]
     Route: 048
  14. FERRLECIT [Concomitant]
     Route: 042
  15. PHOSLO [Concomitant]
     Route: 048
  16. CLARITIN [Concomitant]
     Route: 048
  17. PRILOSEC [Concomitant]
     Route: 048
  18. NEPHRO-CAPS [Concomitant]
  19. HYTRIN [Concomitant]
     Route: 048
  20. TYLENOL-500 [Concomitant]
     Route: 048
  21. IMODIUM [Concomitant]
     Route: 048
  22. NORMAL SALINE [Concomitant]
     Route: 042

REACTIONS (1)
  - THERAPEUTIC RESPONSE DECREASED [None]
